FAERS Safety Report 9248017 (Version 1)
Quarter: 2013Q1

REPORT INFORMATION
  Report Type: Spontaneous
  Country: US (occurrence: None)
  Receive Date: 20130305
  Receipt Date: 20130305
  Transmission Date: 20140127
  Serious: Yes (Other)
  Sender: FDA-Public Use
  Company Number: 163-21880-12101476

PATIENT
  Age: 62 Year
  Sex: Male

DRUGS (4)
  1. REVLIMID [Suspect]
     Indication: PLASMA CELL MYELOMA
     Dosage: 25 MG, 1 IN 1 D, PO
     Route: 048
     Dates: start: 20120405
  2. AMLODIPDINE BESYLATE-BENAZERIL HCL (AMLODIPINE BESYLATE W/BENAZEPRIL HYDROCHLOR.) [Concomitant]
  3. DOXAZOSIN MESYLATE (DOXAZOSIN MESILATE) [Concomitant]
  4. METOPROLOL TARTRATE (METOPROLOL TARTRATE) [Concomitant]

REACTIONS (1)
  - Platelet count decreased [None]
